FAERS Safety Report 6073737-9 (Version None)
Quarter: 2009Q1

REPORT INFORMATION
  Report Type: 
  Country: None (occurrence: None)
  Receive Date: 20090211
  Receipt Date: 20090203
  Transmission Date: 20090719
  Serious: Yes (Other)
  Sender: FDA-Public Use
  Company Number: US-CELGENEUS-163-20785-09020310

PATIENT
  Sex: Male

DRUGS (1)
  1. THALOMID [Suspect]
     Indication: PROSTATE CANCER
     Dosage: 200- 100MG
     Route: 048

REACTIONS (34)
  - ANXIETY [None]
  - ARRHYTHMIA [None]
  - ARRHYTHMIA SUPRAVENTRICULAR [None]
  - ARTHRITIS [None]
  - ATAXIA [None]
  - BLOOD CREATINE PHOSPHOKINASE [None]
  - BRADYCARDIA [None]
  - BRAIN STEM ISCHAEMIA [None]
  - COGNITIVE DISORDER [None]
  - CONSTIPATION [None]
  - DEPRESSED LEVEL OF CONSCIOUSNESS [None]
  - DIARRHOEA [None]
  - DIZZINESS [None]
  - DYSPEPSIA [None]
  - DYSPNOEA [None]
  - EXFOLIATIVE RASH [None]
  - FATIGUE [None]
  - HEADACHE [None]
  - HYPERGLYCAEMIA [None]
  - HYPERSENSITIVITY [None]
  - HYPERTENSION [None]
  - INCONTINENCE [None]
  - LEUKOPENIA [None]
  - MYOCARDIAL ISCHAEMIA [None]
  - NAUSEA [None]
  - NEOPLASM MALIGNANT [None]
  - NEUTROPENIA [None]
  - OEDEMA [None]
  - PERIPHERAL MOTOR NEUROPATHY [None]
  - PLEURAL EFFUSION [None]
  - SYNCOPE [None]
  - THROMBOSIS [None]
  - VOMITING [None]
  - WEIGHT INCREASED [None]
